FAERS Safety Report 5937436-3 (Version None)
Quarter: 2008Q4

REPORT INFORMATION
  Report Type: 
  Country: None (occurrence: None)
  Receive Date: 20081031
  Receipt Date: 20081027
  Transmission Date: 20090506
  Serious: Yes (Hospitalization)
  Sender: FDA-Public Use
  Company Number: A0752172A

PATIENT
  Age: 79 Year
  Sex: Female

DRUGS (10)
  1. ADVAIR DISKUS 100/50 [Suspect]
     Indication: ASTHMA
     Route: 055
  2. SINGULAIR [Concomitant]
  3. CALCIUM [Concomitant]
  4. PRAVACHOL [Concomitant]
  5. ACTONEL [Concomitant]
  6. ASPIRIN [Concomitant]
  7. ASCORBIC ACID [Concomitant]
  8. ZINC [Concomitant]
  9. GLUCOSAMINE CHONDROITIN [Concomitant]
  10. CALTRATE [Concomitant]

REACTIONS (3)
  - ASTHMA [None]
  - CHEST PAIN [None]
  - MEDICATION ERROR [None]
